FAERS Safety Report 6736145-0 (Version None)
Quarter: 2010Q2

REPORT INFORMATION
  Report Type: 
  Country: None (occurrence: None)
  Receive Date: 20100521
  Receipt Date: 20100510
  Transmission Date: 20101027
  Serious: Yes (Life-Threatening)
  Sender: FDA-Public Use
  Company Number: DE-ROCHE-700219

PATIENT
  Sex: Female

DRUGS (1)
  1. ROACTEMRA [Suspect]
     Indication: RHEUMATOID ARTHRITIS
     Dosage: EVENT AFTER THE 2ND INFUSION
     Route: 042
     Dates: start: 20090702, end: 20090804

REACTIONS (1)
  - CEREBROVASCULAR ACCIDENT [None]
